FAERS Safety Report 13464407 (Version 1)
Quarter: 2017Q2

REPORT INFORMATION
  Report Type: Spontaneous
  Country: US (occurrence: US)
  Receive Date: 20170420
  Receipt Date: 20170420
  Transmission Date: 20170830
  Serious: Yes (Hospitalization, Other)
  Sender: FDA-Public Use
  Company Number: US-ROCHE-722603

PATIENT
  Age: 24 Year
  Sex: Female
  Weight: 95.3 kg

DRUGS (3)
  1. ACCUTANE [Suspect]
     Active Substance: ISOTRETINOIN
     Route: 048
     Dates: start: 19910711, end: 19910912
  2. ACCUTANE [Suspect]
     Active Substance: ISOTRETINOIN
     Indication: ACNE CYSTIC
     Route: 048
     Dates: start: 199103, end: 19910710
  3. TYLENOL [Concomitant]
     Active Substance: ACETAMINOPHEN
     Route: 065

REACTIONS (8)
  - Arthralgia [Unknown]
  - Colitis ulcerative [Unknown]
  - Nephrolithiasis [Unknown]
  - Blood triglycerides increased [Unknown]
  - Hepatic enzyme increased [Unknown]
  - Gastrointestinal injury [Unknown]
  - Chapped lips [Unknown]
  - Blood cholesterol increased [Unknown]

NARRATIVE: CASE EVENT DATE: 1991
